FAERS Safety Report 17819870 (Version 2)
Quarter: 2020Q2

REPORT INFORMATION
  Report Type: Spontaneous
  Country: MX (occurrence: MX)
  Receive Date: 20200524
  Receipt Date: 20200630
  Transmission Date: 20200714
  Serious: Yes (Hospitalization)
  Sender: FDA-Public Use
  Company Number: MX-NOVOPROD-725334

PATIENT
  Age: 12 Year
  Sex: Male

DRUGS (24)
  1. NOVOEIGHT [Suspect]
     Active Substance: ANTIHEMOPHILIC FACTOR, HUMAN RECOMBINANT
     Indication: FACTOR VIII DEFICIENCY
     Dosage: 1000 IU (1 VIAL OF 1000IU)
     Route: 042
     Dates: start: 20200313
  2. NOVOEIGHT [Suspect]
     Active Substance: ANTIHEMOPHILIC FACTOR, HUMAN RECOMBINANT
     Dosage: 1000 IU (1 VIAL OF 1000IU)
     Route: 042
     Dates: start: 20200421
  3. NOVOEIGHT [Suspect]
     Active Substance: ANTIHEMOPHILIC FACTOR, HUMAN RECOMBINANT
     Dosage: 1000 IU (1 VIAL OF 1000IU)
     Route: 042
     Dates: start: 20200428
  4. NOVOEIGHT [Suspect]
     Active Substance: ANTIHEMOPHILIC FACTOR, HUMAN RECOMBINANT
     Dosage: 1000 IU (1 VIAL OF 1000IU)
     Route: 042
     Dates: start: 20200512
  5. NOVOEIGHT [Suspect]
     Active Substance: ANTIHEMOPHILIC FACTOR, HUMAN RECOMBINANT
     Dosage: 1000 IU (1 VIAL OF 1000IU)
     Route: 042
     Dates: start: 20200525
  6. NOVOEIGHT [Suspect]
     Active Substance: ANTIHEMOPHILIC FACTOR, HUMAN RECOMBINANT
     Dosage: 1000 IU (1 VIAL OF 1000IU)
     Route: 042
     Dates: start: 20200327
  7. NOVOEIGHT [Suspect]
     Active Substance: ANTIHEMOPHILIC FACTOR, HUMAN RECOMBINANT
     Dosage: 1000 IU (1 VIAL OF 1000IU)
     Route: 042
     Dates: start: 20200508
  8. NOVOEIGHT [Suspect]
     Active Substance: ANTIHEMOPHILIC FACTOR, HUMAN RECOMBINANT
     Dosage: 1000 IU (1 VIAL OF 1000IU)
     Route: 042
     Dates: start: 20200331
  9. NOVOEIGHT [Suspect]
     Active Substance: ANTIHEMOPHILIC FACTOR, HUMAN RECOMBINANT
     Dosage: 1000 IU (1 VIAL OF 1000IU)
     Route: 042
     Dates: start: 20200519
  10. NOVOEIGHT [Suspect]
     Active Substance: ANTIHEMOPHILIC FACTOR, HUMAN RECOMBINANT
     Dosage: 1000 IU (1 VIAL OF 1000IU)
     Route: 042
     Dates: start: 20200324
  11. NOVOEIGHT [Suspect]
     Active Substance: ANTIHEMOPHILIC FACTOR, HUMAN RECOMBINANT
     Dosage: 1000 IU (1 VIAL OF 1000IU)
     Route: 042
     Dates: start: 20200407
  12. NOVOEIGHT [Suspect]
     Active Substance: ANTIHEMOPHILIC FACTOR, HUMAN RECOMBINANT
     Dosage: 1000 IU (1 VIAL OF 1000IU)
     Route: 042
     Dates: start: 20200414
  13. NOVOEIGHT [Suspect]
     Active Substance: ANTIHEMOPHILIC FACTOR, HUMAN RECOMBINANT
     Dosage: 1000 IU (1 VIAL OF 1000IU)
     Route: 042
     Dates: start: 20200424
  14. NOVOEIGHT [Suspect]
     Active Substance: ANTIHEMOPHILIC FACTOR, HUMAN RECOMBINANT
     Dosage: 1000 IU (1 VIAL OF 1000IU)
     Route: 042
     Dates: start: 20200501
  15. NOVOEIGHT [Suspect]
     Active Substance: ANTIHEMOPHILIC FACTOR, HUMAN RECOMBINANT
     Dosage: 1000 IU (1 VIAL OF 1000IU)
     Route: 042
     Dates: start: 20200507
  16. NOVOEIGHT [Suspect]
     Active Substance: ANTIHEMOPHILIC FACTOR, HUMAN RECOMBINANT
     Dosage: 1000 IU (1 VIAL OF 1000IU)
     Route: 042
     Dates: start: 20200515
  17. NOVOEIGHT [Suspect]
     Active Substance: ANTIHEMOPHILIC FACTOR, HUMAN RECOMBINANT
     Indication: PROPHYLAXIS
     Dosage: 1000 IU (1 VIAL OF 1000IU)
     Route: 042
     Dates: start: 20200317
  18. NOVOEIGHT [Suspect]
     Active Substance: ANTIHEMOPHILIC FACTOR, HUMAN RECOMBINANT
     Dosage: 1000 IU (1 VIAL OF 1000IU)
     Route: 042
     Dates: start: 20200320
  19. NOVOEIGHT [Suspect]
     Active Substance: ANTIHEMOPHILIC FACTOR, HUMAN RECOMBINANT
     Dosage: 1000 IU (1 VIAL OF 1000IU)
     Route: 042
     Dates: start: 20200329
  20. NOVOEIGHT [Suspect]
     Active Substance: ANTIHEMOPHILIC FACTOR, HUMAN RECOMBINANT
     Dosage: 1000 IU (1 VIAL OF 1000IU)
     Route: 042
     Dates: start: 20200526
  21. NOVOEIGHT [Suspect]
     Active Substance: ANTIHEMOPHILIC FACTOR, HUMAN RECOMBINANT
     Dosage: 1000 IU (1 VIAL OF 1000IU)
     Route: 042
     Dates: start: 20200403
  22. NOVOEIGHT [Suspect]
     Active Substance: ANTIHEMOPHILIC FACTOR, HUMAN RECOMBINANT
     Dosage: 1000 IU (1 VIAL OF 1000IU)
     Route: 042
     Dates: start: 20200417
  23. NOVOEIGHT [Suspect]
     Active Substance: ANTIHEMOPHILIC FACTOR, HUMAN RECOMBINANT
     Dosage: 1000 IU (1 VIAL OF 1000IU)
     Route: 042
     Dates: start: 20200427
  24. NOVOEIGHT [Suspect]
     Active Substance: ANTIHEMOPHILIC FACTOR, HUMAN RECOMBINANT
     Dosage: 1000 IU (1 VIAL OF 1000IU)
     Route: 042
     Dates: start: 20200522

REACTIONS (5)
  - Haemarthrosis [Unknown]
  - Haemarthrosis [Unknown]
  - Haemarthrosis [Unknown]
  - Hospitalisation [Recovered/Resolved]
  - Haemarthrosis [Unknown]

NARRATIVE: CASE EVENT DATE: 20200329
